FAERS Safety Report 26011507 (Version 1)
Quarter: 2025Q4

REPORT INFORMATION
  Report Type: Spontaneous
  Country: GB (occurrence: GB)
  Receive Date: 20251107
  Receipt Date: 20251107
  Transmission Date: 20260117
  Serious: Yes (Hospitalization, Other)
  Sender: ABBVIE
  Company Number: GB-PHARMVIT-4556-3352-ER25-RN1511

PATIENT
  Age: 14 Year
  Sex: Female

DRUGS (1)
  1. PREDNISOLONE [Suspect]
     Active Substance: PREDNISOLONE
     Indication: Product used for unknown indication
     Route: 065

REACTIONS (8)
  - Drug-disease interaction [Recovered/Resolved]
  - Fluid retention [Recovered/Resolved]
  - Posterior reversible encephalopathy syndrome [Recovered/Resolved]
  - Hypernatraemia [Recovered/Resolved]
  - Lupus nephritis [Unknown]
  - Fatigue [Unknown]
  - Oedema peripheral [Unknown]
  - Chronic kidney disease [Unknown]
